FAERS Safety Report 10233933 (Version 4)
Quarter: 2014Q3

REPORT INFORMATION
  Report Type: Spontaneous
  Country: US (occurrence: US)
  Receive Date: 20140612
  Receipt Date: 20140806
  Transmission Date: 20150326
  Serious: Yes (Hospitalization, Other)
  Sender: FDA-Public Use
  Company Number: US-TEVA-486221USA

PATIENT
  Age: 35 Year
  Sex: Female

DRUGS (1)
  1. COPAXONE [Suspect]
     Active Substance: GLATIRAMER ACETATE
     Indication: MULTIPLE SCLEROSIS
     Dates: start: 20140501, end: 2014

REACTIONS (9)
  - Injection site haemorrhage [Unknown]
  - Peripheral swelling [Unknown]
  - Cough [Unknown]
  - Visual acuity reduced [Unknown]
  - Multiple sclerosis relapse [Recovered/Resolved]
  - Lymphadenopathy [Unknown]
  - Blindness [Recovered/Resolved]
  - Injection site warmth [Unknown]
  - Injection site pain [Unknown]

NARRATIVE: CASE EVENT DATE: 20140527
